FAERS Safety Report 7659869-X (Version None)
Quarter: 2011Q3

REPORT INFORMATION
  Report Type: 
  Country: None (occurrence: None)
  Receive Date: 20110805
  Receipt Date: 20110203
  Transmission Date: 20111222
  Serious: No
  Sender: FDA-Public Use
  Company Number: US-ABBOTT-11P-163-0703511-00

PATIENT
  Sex: Male
  Weight: 81.72 kg

DRUGS (3)
  1. DEPAKOTE ER [Suspect]
     Indication: EPILEPSY
     Dates: start: 19960101
  2. MANY OTHER UNKNOWN MEDICATIONS [Concomitant]
     Indication: PRODUCT USED FOR UNKNOWN INDICATION
  3. TEGRETOL [Concomitant]
     Indication: PRODUCT USED FOR UNKNOWN INDICATION

REACTIONS (4)
  - CONTUSION [None]
  - FOOT FRACTURE [None]
  - PLATELET COUNT DECREASED [None]
  - HAND FRACTURE [None]
